FAERS Safety Report 22164623 (Version 1)
Quarter: 2023Q2

REPORT INFORMATION
  Report Type: Spontaneous
  Country: US (occurrence: US)
  Receive Date: 20230403
  Receipt Date: 20230403
  Transmission Date: 20230721
  Serious: No
  Sender: FDA-Public Use
  Company Number: US-CIPLA LTD.-2022US02407

PATIENT

DRUGS (4)
  1. SERTRALINE [Suspect]
     Active Substance: SERTRALINE HYDROCHLORIDE
     Indication: Product used for unknown indication
     Dosage: 50 MILLIGRAMS
     Route: 065
  2. SERTRALINE [Suspect]
     Active Substance: SERTRALINE HYDROCHLORIDE
     Dosage: 25 MILLIGRAMS, FOR A COUPLE OF WEEKS
     Route: 065
  3. SERTRALINE [Suspect]
     Active Substance: SERTRALINE HYDROCHLORIDE
     Dosage: 50 MILLIGRAMS
     Route: 065
  4. SERTRALINE [Suspect]
     Active Substance: SERTRALINE HYDROCHLORIDE
     Dosage: 25 MILLIGRAMS
     Route: 065
     Dates: start: 202203, end: 20220319

REACTIONS (5)
  - Feeling jittery [Unknown]
  - Insomnia [Unknown]
  - Nausea [Unknown]
  - Electric shock sensation [Unknown]
  - Drug withdrawal syndrome [Unknown]

NARRATIVE: CASE EVENT DATE: 20220101
